FAERS Safety Report 24327939 (Version 2)
Quarter: 2024Q3

REPORT INFORMATION
  Report Type: Spontaneous
  Country: US (occurrence: US)
  Receive Date: 20240917
  Receipt Date: 20240923
  Transmission Date: 20241016
  Serious: Yes (Other)
  Sender: PFIZER
  Company Number: US-PFIZER INC-202400256357

PATIENT
  Sex: Male

DRUGS (1)
  1. RETACRIT [Suspect]
     Active Substance: EPOETIN ALFA-EPBX
     Indication: Erythropoietin deficiency anaemia
     Dosage: ONCE EVERY TWO WEEKS

REACTIONS (2)
  - Hallucination [Recovered/Resolved]
  - Nausea [Unknown]
